FAERS Safety Report 15064905 (Version 2)
Quarter: 2018Q3

REPORT INFORMATION
  Report Type: Spontaneous
  Country: US (occurrence: US)
  Receive Date: 20180626
  Receipt Date: 20180723
  Transmission Date: 20181010
  Serious: Yes (Hospitalization)
  Sender: FDA-Public Use
  Company Number: US-EDENBRIDGE PHARMACEUTICALS, LLC-US-2018EDE000207

PATIENT

DRUGS (2)
  1. OPIUM TINCTURE [Suspect]
     Active Substance: MORPHINE
     Indication: GASTROINTESTINAL INFLAMMATION
     Dosage: 1?2 ML QID
     Route: 048
  2. OPIUM TINCTURE [Suspect]
     Active Substance: MORPHINE
     Indication: COLITIS

REACTIONS (1)
  - Ill-defined disorder [Unknown]
